FAERS Safety Report 7506192-X (Version None)
Quarter: 2011Q2

REPORT INFORMATION
  Report Type: 
  Country: None (occurrence: None)
  Receive Date: 20110526
  Receipt Date: 20110427
  Transmission Date: 20111010
  Serious: Yes (Hospitalization)
  Sender: FDA-Public Use
  Company Number: ES-JNJFOC-20110411634

PATIENT
  Age: 49 Year
  Sex: Female

DRUGS (5)
  1. LEVOFLOXACIN [Suspect]
     Indication: PROPHYLAXIS
     Route: 048
     Dates: start: 20101224, end: 20110117
  2. FUROSEMIDE [Concomitant]
     Indication: ASCITES
     Route: 048
     Dates: start: 20100428
  3. TIAPRIZAL [Suspect]
     Indication: ALCOHOLISM
     Route: 048
     Dates: start: 20100721, end: 20110107
  4. ALDACTONE [Concomitant]
     Indication: ASCITES
     Route: 048
     Dates: start: 20100428
  5. RISPERDAL CONSTA [Suspect]
     Indication: SCHIZOPHRENIA
     Route: 030
     Dates: start: 20100721, end: 20110105

REACTIONS (1)
  - EXTRAPYRAMIDAL DISORDER [None]
